FAERS Safety Report 4342997-4 (Version None)
Quarter: 2004Q2

REPORT INFORMATION
  Report Type: 
  Country: None (occurrence: None)
  Receive Date: 20040421
  Receipt Date: 20040401
  Transmission Date: 20050107
  Serious: Yes (Hospitalization)
  Sender: FDA-Public Use
  Company Number: PHEH2004US03972

PATIENT
  Age: 49 Year
  Sex: Female
  Weight: 106 kg

DRUGS (14)
  1. ZOMETA [Suspect]
     Indication: METASTASES TO BONE
     Dosage: 4 MG MONTHLY
     Route: 042
     Dates: start: 20020919
  2. FASLODEX [Concomitant]
     Dosage: 250 MG, QMO
     Route: 030
  3. EFFEXOR XR [Concomitant]
     Dosage: 75 MG, QD
  4. WARFARIN SODIUM [Concomitant]
     Dosage: 1 MG, QD
     Route: 048
  5. PREVACID [Concomitant]
     Dosage: 30 MG, QD
  6. ADRIAMYCIN PFS [Concomitant]
  7. CYTOXAN [Concomitant]
  8. FEMARA [Concomitant]
     Indication: BREAST CANCER METASTATIC
     Dates: start: 20021031
  9. DECADRON [Concomitant]
     Dosage: 10 MG PRECHEMO FOR 6 CYCLES
  10. CELEBREX [Concomitant]
  11. EPIRUBICIN [Concomitant]
     Dosage: 100 MG 1 M2 FOR 6 CYCLES
     Route: 042
     Dates: start: 20031031, end: 20040213
  12. RANITIDINE [Concomitant]
  13. UNASYN [Concomitant]
     Indication: PROPHYLAXIS
     Dates: start: 20040326
  14. TAMOXIFEN CITRATE [Concomitant]
     Indication: BREAST CANCER METASTATIC
     Dates: start: 19970801

REACTIONS (9)
  - ANAEMIA [None]
  - BONE LESION [None]
  - GINGIVAL DISORDER [None]
  - IMPAIRED HEALING [None]
  - OSTECTOMY [None]
  - OSTEOMYELITIS [None]
  - PAIN [None]
  - TOOTH EXTRACTION [None]
  - WOUND DEBRIDEMENT [None]
